FAERS Safety Report 13652169 (Version 1)
Quarter: 2017Q2

REPORT INFORMATION
  Report Type: Report from Study
  Country: IT (occurrence: IT)
  Receive Date: 20170614
  Receipt Date: 20170614
  Transmission Date: 20170830
  Serious: Yes (Hospitalization)
  Sender: FDA-Public Use
  Company Number: IT-AMGEN-ITACT2013050870

PATIENT
  Age: 50 Year
  Sex: Female
  Weight: 55 kg

DRUGS (8)
  1. PEGYLATED LIPOSOMAL DOXORUBICIN HYDROCHLORIDE [Concomitant]
     Active Substance: DOXORUBICIN HYDROCHLORIDE
     Indication: OVARIAN CANCER
     Dosage: 80 MG, UNK
     Route: 042
     Dates: start: 20130620, end: 20130620
  2. URBASON [Concomitant]
     Active Substance: METHYLPREDNISOLONE
     Dosage: 20 MG, UNK
     Route: 042
     Dates: start: 20130620, end: 20130620
  3. RANITIDINE. [Concomitant]
     Active Substance: RANITIDINE
     Dosage: 50-100 MG, UNK
     Route: 042
     Dates: start: 20130619, end: 20130620
  4. SOLDESAM [Concomitant]
     Active Substance: DEXAMETHASONE
     Dosage: 4-8 MG, UNK
     Route: 042
     Dates: start: 20130619, end: 20130620
  5. VOLUVEN [Concomitant]
     Active Substance: HYDROXYETHYL STARCH 130/0.4
     Dosage: 50 ML, UNK
     Route: 042
     Dates: start: 20130619, end: 20130619
  6. TRIMETON [Concomitant]
     Active Substance: CHLORPHENIRAMINE MALEATE
     Indication: PREMEDICATION
     Dosage: 10 MG, UNK
     Route: 042
     Dates: start: 20130620, end: 20130620
  7. PLACEBO [Suspect]
     Active Substance: UNSPECIFIED INGREDIENT
     Indication: OVARIAN CANCER
     Dosage: UNK
     Route: 065
     Dates: start: 20130620
  8. NAVOBAN [Concomitant]
     Active Substance: TROPISETRON HYDROCHLORIDE
     Dosage: 5 MG, UNK
     Route: 042
     Dates: start: 20130620, end: 20130620

REACTIONS (1)
  - Pleural effusion [Unknown]

NARRATIVE: CASE EVENT DATE: 20130718
